FAERS Safety Report 5858472-1 (Version None)
Quarter: 2008Q3

REPORT INFORMATION
  Report Type: 
  Country: None (occurrence: None)
  Receive Date: 20080822
  Receipt Date: 20080801
  Transmission Date: 20090109
  Serious: Yes (Hospitalization)
  Sender: FDA-Public Use
  Company Number: GRP08000086

PATIENT
  Age: 65 Year
  Sex: Female
  Weight: 72 kg

DRUGS (1)
  1. ACTONEL PLUS CALCIUM D (RISEDRONATE SODIUM 35 MG, CALCIUM CARBONATE 25 [Suspect]
     Indication: OSTEOPOROSIS
     Dosage: 35 MG, CYCLIC 1/D, ORAL
     Route: 048
     Dates: start: 20071001, end: 20080410

REACTIONS (4)
  - MOBILITY DECREASED [None]
  - MUSCULAR WEAKNESS [None]
  - PAIN IN EXTREMITY [None]
  - WALKING AID USER [None]
